FAERS Safety Report 7954372-1 (Version None)
Quarter: 2011Q4

REPORT INFORMATION
  Report Type: 
  Country: None (occurrence: None)
  Receive Date: 20111202
  Receipt Date: 20111128
  Transmission Date: 20120403
  Serious: Yes (Other)
  Sender: FDA-Public Use
  Company Number: BR-PFIZER INC-2011291789

PATIENT
  Age: 34 Year
  Sex: Female
  Weight: 46 kg

DRUGS (4)
  1. AMITRIPTYLINE HYDROCHLORIDE [Concomitant]
     Indication: INSOMNIA
     Dosage: UNK
     Dates: start: 20090101, end: 20111101
  2. AMITRIPTYLINE HYDROCHLORIDE [Concomitant]
     Indication: RELAXATION THERAPY
  3. AMITRIPTYLINE HYDROCHLORIDE [Concomitant]
     Indication: PANIC DISORDER
  4. VARENICLINE TARTRATE [Suspect]
     Indication: SMOKING CESSATION THERAPY
     Dosage: UNK
     Route: 048
     Dates: start: 20111101

REACTIONS (9)
  - AGGRESSION [None]
  - NERVOUSNESS [None]
  - NAUSEA [None]
  - INCREASED APPETITE [None]
  - DELIRIUM [None]
  - ANXIETY [None]
  - NIGHTMARE [None]
  - WEIGHT INCREASED [None]
  - SLEEP DISORDER [None]
